FAERS Safety Report 23912268 (Version 1)
Quarter: 2024Q2

REPORT INFORMATION
  Report Type: Spontaneous
  Country: ZA (occurrence: None)
  Receive Date: 20240528
  Receipt Date: 20240528
  Transmission Date: 20240715
  Serious: Yes (Other)
  Sender: FDA-Public Use
  Company Number: 2024A119855

PATIENT
  Age: 83 Year
  Sex: Female

DRUGS (7)
  1. BUDESONIDE\FORMOTEROL FUMARATE DIHYDRATE [Suspect]
     Active Substance: BUDESONIDE\FORMOTEROL FUMARATE DIHYDRATE
     Indication: Asthma
     Dosage: 120 DOSE 160/4.5 MCG UNKNOWN FREQUENCY UNKNOWN
     Route: 055
  2. PERINDOPRIL ERBUMINE [Concomitant]
     Active Substance: PERINDOPRIL ERBUMINE
     Indication: Hypertension
  3. ZOLEDRONIC ACID [Concomitant]
     Active Substance: ZOLEDRONIC ACID
     Indication: Neoplasm malignant
     Route: 058
  4. SPIRACTIN [Concomitant]
     Indication: Hypertension
  5. EQUISIN [Concomitant]
     Indication: Neoplasm malignant
  6. GLUCOPHAGE [Concomitant]
     Active Substance: METFORMIN HYDROCHLORIDE
     Indication: Diabetes mellitus
  7. ETORICOXIB [Concomitant]
     Active Substance: ETORICOXIB
     Indication: Pain

REACTIONS (1)
  - Neoplasm malignant [Unknown]
